FAERS Safety Report 7542669-9 (Version None)
Quarter: 2011Q2

REPORT INFORMATION
  Report Type: 
  Country: None (occurrence: None)
  Receive Date: 20110613
  Receipt Date: 20110608
  Transmission Date: 20111010
  Serious: Yes (Hospitalization, Other)
  Sender: FDA-Public Use
  Company Number: CH-PFIZER INC-2011124381

PATIENT
  Age: 69 Year
  Sex: Male
  Weight: 46.7 kg

DRUGS (7)
  1. NOZINAN [Interacting]
     Dosage: 100 MG, 1X/DAY
     Route: 048
     Dates: start: 20070101
  2. TOLVON [Interacting]
     Dosage: 60 MG, 1X/DAY
     Route: 048
     Dates: start: 20070101
  3. NOZINAN [Interacting]
     Dosage: 50 MG, 1X/DAY
     Route: 048
     Dates: start: 20110504
  4. ZYPREXA [Suspect]
     Dosage: 10 MG, 1X/DAY
     Route: 048
     Dates: start: 20070101
  5. NICOTINE [Concomitant]
     Dosage: 21 MG
     Route: 048
  6. LYRICA [Suspect]
     Dosage: 100 MG, 3X/DAY
     Route: 048
     Dates: start: 20090201
  7. ROHYPNOL [Suspect]
     Dosage: 2 MG, 1X/DAY
     Route: 048
     Dates: start: 20070101, end: 20110504

REACTIONS (12)
  - ESCHAR [None]
  - AMNESIA [None]
  - LETHARGY [None]
  - DRUG LEVEL INCREASED [None]
  - DRY SKIN [None]
  - FALL [None]
  - RHABDOMYOLYSIS [None]
  - CACHEXIA [None]
  - AFFECT LABILITY [None]
  - MUTISM [None]
  - EXTRAPYRAMIDAL DISORDER [None]
  - DRUG INTERACTION [None]
